FAERS Safety Report 12582899 (Version 1)
Quarter: 2016Q3

REPORT INFORMATION
  Report Type: Spontaneous
  Country: AU (occurrence: AU)
  Receive Date: 20160722
  Receipt Date: 20160722
  Transmission Date: 20161109
  Serious: Yes (Other)
  Sender: FDA-Public Use
  Company Number: AU-PFIZER INC-2016346971

PATIENT
  Age: 49 Year
  Sex: Female

DRUGS (2)
  1. FORTEO [Suspect]
     Active Substance: TERIPARATIDE
     Indication: OSTEOPOROSIS
     Dosage: UNK UNK, 1X/DAY
     Dates: start: 20150731
  2. MORPHINE SULFATE. [Suspect]
     Active Substance: MORPHINE SULFATE

REACTIONS (12)
  - Polyp [Unknown]
  - Arthralgia [Unknown]
  - Pain [Unknown]
  - Chest discomfort [Unknown]
  - Cough [Unknown]
  - Serum ferritin decreased [Unknown]
  - Fatigue [Recovering/Resolving]
  - Cardiac flutter [Unknown]
  - Insomnia [Unknown]
  - Nausea [Unknown]
  - Concomitant disease aggravated [Unknown]
  - Injection site pain [Not Recovered/Not Resolved]

NARRATIVE: CASE EVENT DATE: 20150902
